FAERS Safety Report 4577335-5 (Version None)
Quarter: 2005Q1

REPORT INFORMATION
  Report Type: 
  Country: None (occurrence: None)
  Receive Date: 20050210
  Receipt Date: 20050131
  Transmission Date: 20050727
  Serious: Yes (Death)
  Sender: FDA-Public Use
  Company Number: US-GLAXOSMITHKLINE-A0543575A

PATIENT
  Age: 74 Year
  Sex: Female
  Weight: 67.3 kg

DRUGS (1)
  1. TOPOTECAN [Suspect]
     Indication: DRUG USE FOR UNKNOWN INDICATION
     Route: 065

REACTIONS (1)
  - HAEMORRHAGE [None]
